FAERS Safety Report 6818523-4 (Version None)
Quarter: 2010Q3

REPORT INFORMATION
  Report Type: 
  Country: None (occurrence: None)
  Receive Date: 20100706
  Receipt Date: 20080521
  Transmission Date: 20110219
  Serious: No
  Sender: FDA-Public Use
  Company Number: US-PFIZER INC-2008041523

PATIENT
  Sex: Female
  Weight: 113.4 kg

DRUGS (6)
  1. ZITHROMAX [Suspect]
     Indication: SINUSITIS
     Dates: start: 20080507, end: 20080511
  2. ZITHROMAX [Suspect]
     Indication: EAR INFECTION
  3. ZITHROMAX [Suspect]
     Indication: UPPER RESPIRATORY TRACT INFECTION
  4. PROTONIX [Concomitant]
  5. SYNTHROID [Concomitant]
  6. THYROID TAB [Concomitant]

REACTIONS (2)
  - DRUG INEFFECTIVE [None]
  - PSYCHOMOTOR HYPERACTIVITY [None]
